FAERS Safety Report 17242363 (Version 1)
Quarter: 2020Q1

REPORT INFORMATION
  Report Type: Spontaneous
  Country: US (occurrence: US)
  Receive Date: 20200107
  Receipt Date: 20200107
  Transmission Date: 20200409
  Serious: No
  Sender: FDA-Public Use
  Company Number: US-NEOS THERAPEUTICS, LP-2019NEO00049

PATIENT
  Age: 13 Year
  Sex: Male
  Weight: 39.46 kg

DRUGS (2)
  1. ADZENYS ER [Suspect]
     Active Substance: AMPHETAMINE
     Indication: ATTENTION DEFICIT/HYPERACTIVITY DISORDER
     Dosage: 6 ML (ALSO REPORTED AS 7.5 ML
     Route: 048
     Dates: start: 20191015, end: 20191017
  2. ADZENYS ER [Suspect]
     Active Substance: AMPHETAMINE
     Dosage: 7.5 ML, 1X/DAY (ALSO REPORTED AS 6 ML)
     Route: 048
     Dates: start: 20191015, end: 20191017

REACTIONS (3)
  - Erythema [Recovered/Resolved]
  - Headache [Recovered/Resolved]
  - Rash macular [Recovered/Resolved]

NARRATIVE: CASE EVENT DATE: 20191016
